FAERS Safety Report 10501184 (Version 1)
Quarter: 2014Q4

REPORT INFORMATION
  Report Type: Spontaneous
  Country: US (occurrence: None)
  Receive Date: 20141006
  Receipt Date: 20141006
  Transmission Date: 20150528
  Serious: Yes (Death)
  Sender: FDA-Public Use
  Company Number: None

PATIENT
  Age: 60 Year
  Sex: Female
  Weight: 64.86 kg

DRUGS (1)
  1. HUMIRA [Suspect]
     Active Substance: ADALIMUMAB
     Indication: RHEUMATOID ARTHRITIS
     Dosage: 1 INJECTION, EVERY OTHER WEEK, GIVEN INTO/UNDER THE SKIN
     Dates: start: 20101111, end: 20140907

REACTIONS (3)
  - Posture abnormal [None]
  - Hypoaesthesia [None]
  - Unresponsive to stimuli [None]

NARRATIVE: CASE EVENT DATE: 20140920
